FAERS Safety Report 4970502-8 (Version None)
Quarter: 2006Q2

REPORT INFORMATION
  Report Type: 
  Country: None (occurrence: None)
  Receive Date: 20060412
  Receipt Date: 20060314
  Transmission Date: 20061013
  Serious: Yes (Death, Other)
  Sender: FDA-Public Use
  Company Number: US-BRISTOL-MYERS SQUIBB COMPANY-13314646

PATIENT
  Age: 71 Year
  Sex: Male
  Weight: 65 kg

DRUGS (10)
  1. ERBITUX [Suspect]
     Indication: NEOPLASM MALIGNANT
     Dosage: FIRST DOSE 750 MG IV-05-DEC-2005/HELD 27-DEC-2005 DUE TO XMAS/HELD 03-JAN, 06-F, 13-FEB DUE TO RASH.
     Route: 042
     Dates: start: 20051201, end: 20051201
  2. ALOXI [Concomitant]
     Indication: PREMEDICATION
     Route: 040
     Dates: start: 20060220
  3. ARANESP [Concomitant]
     Dosage: ADMINISTERED ON 16-JAN-2006, 30-JAN-2006, 02-JAN-2006, 20-FEB-2006.
  4. BENADRYL [Concomitant]
     Indication: PREMEDICATION
     Route: 040
     Dates: start: 20051201
  5. CARBOPLATIN [Concomitant]
     Dates: end: 20060220
  6. DECADRON [Concomitant]
     Indication: PREMEDICATION
     Dosage: ADMINISTERED IN A 100 CC IV.
     Route: 041
     Dates: start: 20060220
  7. MANNITOL [Concomitant]
     Dates: end: 20060220
  8. POTASSIUM [Concomitant]
  9. TAXOTERE [Concomitant]
     Dates: end: 20060220
  10. TYLENOL (CAPLET) [Concomitant]
     Indication: PREMEDICATION
     Route: 048
     Dates: start: 20051201, end: 20051201

REACTIONS (8)
  - DEATH [None]
  - FACE INJURY [None]
  - FALL [None]
  - HAEMORRHAGE [None]
  - PLATELET COUNT DECREASED [None]
  - RASH PUSTULAR [None]
  - SKIN ODOUR ABNORMAL [None]
  - WHITE BLOOD CELL COUNT DECREASED [None]
